FAERS Safety Report 10763175 (Version 1)
Quarter: 2015Q1

REPORT INFORMATION
  Report Type: Spontaneous
  Country: CZ (occurrence: CZ)
  Receive Date: 20150204
  Receipt Date: 20150204
  Transmission Date: 20150721
  Serious: Yes (Hospitalization, Other)
  Sender: FDA-Public Use
  Company Number: CZ-PFIZER INC-2015038550

PATIENT
  Age: 30 Year
  Sex: Male
  Weight: 70 kg

DRUGS (1)
  1. LYRICA [Suspect]
     Active Substance: PREGABALIN
     Indication: GENERALISED ANXIETY DISORDER
     Dosage: 150 MG, 4X/DAY
     Route: 048
     Dates: start: 2014

REACTIONS (5)
  - Generalised tonic-clonic seizure [Unknown]
  - Head injury [Unknown]
  - Fall [Unknown]
  - Petit mal epilepsy [Unknown]
  - Epileptic aura [Unknown]

NARRATIVE: CASE EVENT DATE: 2014
